FAERS Safety Report 19749552 (Version 3)
Quarter: 2021Q4

REPORT INFORMATION
  Report Type: Spontaneous
  Country: JP (occurrence: JP)
  Receive Date: 20210826
  Receipt Date: 20211025
  Transmission Date: 20220303
  Serious: Yes (Death, Other)
  Sender: FDA-Public Use
  Company Number: JP-ASTELLAS-2021JP016430

PATIENT
  Age: 78 Year
  Sex: Male

DRUGS (5)
  1. DEGARELIX [Suspect]
     Active Substance: DEGARELIX
     Indication: Prostate cancer
     Route: 058
     Dates: start: 201606
  2. DEGARELIX [Suspect]
     Active Substance: DEGARELIX
     Route: 058
     Dates: end: 20190606
  3. XTANDI [Suspect]
     Active Substance: ENZALUTAMIDE
     Indication: Hormone-refractory prostate cancer
     Route: 048
     Dates: start: 20160721, end: 20190623
  4. ASPIRIN [Suspect]
     Active Substance: ASPIRIN
     Indication: Product used for unknown indication
     Dosage: 100 MG/DAY, UNKNOWN FREQ.
     Route: 048
     Dates: start: 200812, end: 20190623
  5. EDOXABAN TOSYLATE [Suspect]
     Active Substance: EDOXABAN TOSYLATE
     Indication: Product used for unknown indication
     Dosage: 60 MG/DAY, UNKNOWN FREQ.
     Route: 048
     Dates: start: 201701, end: 20190623

REACTIONS (1)
  - Cerebral haemorrhage [Fatal]

NARRATIVE: CASE EVENT DATE: 20190624
